FAERS Safety Report 11703386 (Version 7)
Quarter: 2017Q3

REPORT INFORMATION
  Report Type: Report from Study
  Country: CA (occurrence: CA)
  Receive Date: 20151105
  Receipt Date: 20170815
  Transmission Date: 20171127
  Serious: Yes (Hospitalization, Other)
  Sender: FDA-Public Use
  Company Number: CA-TAKEDA-2015TUS013426

PATIENT
  Age: 58 Year
  Sex: Male

DRUGS (4)
  1. TRAMACET [Concomitant]
     Active Substance: ACETAMINOPHEN\TRAMADOL
     Dosage: UNK, Q4HR
     Route: 048
  2. VEDOLIZUMAB [Suspect]
     Active Substance: VEDOLIZUMAB
     Indication: CROHN^S DISEASE
     Dosage: 300 MG, UNK
     Route: 042
     Dates: start: 20150826
  3. VEDOLIZUMAB [Suspect]
     Active Substance: VEDOLIZUMAB
     Dosage: 300 MG, Q4WEEKS
     Route: 042
     Dates: start: 20161004
  4. DEXLANSOPRAZOLE [Concomitant]
     Active Substance: DEXLANSOPRAZOLE
     Dosage: 60 MG, UNK

REACTIONS (8)
  - Off label use [Unknown]
  - Weight fluctuation [Unknown]
  - Nephrolithiasis [Recovered/Resolved]
  - Frequent bowel movements [Unknown]
  - Anal fistula [Unknown]
  - Decreased appetite [Unknown]
  - Intestinal obstruction [Not Recovered/Not Resolved]
  - Crohn^s disease [Not Recovered/Not Resolved]

NARRATIVE: CASE EVENT DATE: 2015
